FAERS Safety Report 5746952-9 (Version None)
Quarter: 2008Q2

REPORT INFORMATION
  Report Type: 
  Country: None (occurrence: None)
  Receive Date: 20080522
  Receipt Date: 20080512
  Transmission Date: 20081010
  Serious: Yes (Other)
  Sender: FDA-Public Use
  Company Number: US-PFIZER INC-2008040990

PATIENT
  Sex: Female
  Weight: 86.363 kg

DRUGS (10)
  1. TIKOSYN [Suspect]
     Indication: ATRIAL FIBRILLATION
     Dates: start: 20080408, end: 20080502
  2. TIKOSYN [Suspect]
     Dates: start: 20080503, end: 20080512
  3. LISINOPRIL [Concomitant]
  4. K-DUR [Concomitant]
  5. MAGNESIUM OXIDE [Concomitant]
  6. CUMADIN [Concomitant]
  7. CRESTOR [Concomitant]
  8. COMBIVENT [Concomitant]
  9. LASIX [Concomitant]
  10. CARVEDILOL [Concomitant]

REACTIONS (5)
  - ATRIAL FIBRILLATION [None]
  - CARDIAC FAILURE CONGESTIVE [None]
  - CONDITION AGGRAVATED [None]
  - MEDICATION ERROR [None]
  - PULMONARY OEDEMA [None]
